FAERS Safety Report 9030099 (Version 2)
Quarter: 2013Q2

REPORT INFORMATION
  Report Type: Spontaneous
  Country: US (occurrence: US)
  Receive Date: 20130125
  Receipt Date: 20130430
  Transmission Date: 20140414
  Serious: No
  Sender: FDA-Public Use
  Company Number: US-BIOGENIDEC-2013BI007779

PATIENT
  Age: 45 Year
  Sex: Female

DRUGS (2)
  1. TYSABRI [Suspect]
     Indication: MULTIPLE SCLEROSIS
     Route: 042
     Dates: start: 20080317, end: 20110519
  2. TYSABRI [Suspect]
     Indication: MULTIPLE SCLEROSIS
     Route: 042
     Dates: start: 20111209

REACTIONS (16)
  - Mobility decreased [Recovered/Resolved]
  - Abasia [Recovered/Resolved]
  - Renal cyst [Not Recovered/Not Resolved]
  - Gait disturbance [Recovered/Resolved]
  - Cognitive disorder [Recovered/Resolved]
  - Rhinorrhoea [Not Recovered/Not Resolved]
  - General symptom [Not Recovered/Not Resolved]
  - Visual impairment [Not Recovered/Not Resolved]
  - Memory impairment [Not Recovered/Not Resolved]
  - Muscular weakness [Recovered/Resolved]
  - Hemiparesis [Recovered/Resolved]
  - Paralysis [Recovered/Resolved]
  - Coordination abnormal [Recovered/Resolved]
  - Kidney infection [Unknown]
  - Fatigue [Recovered/Resolved]
  - Bronchitis [Recovered/Resolved]
